FAERS Safety Report 6994269-7 (Version None)
Quarter: 2010Q3

REPORT INFORMATION
  Report Type: 
  Country: None (occurrence: None)
  Receive Date: 20100917
  Receipt Date: 20100302
  Transmission Date: 20110219
  Serious: Yes (Other)
  Sender: FDA-Public Use
  Company Number: US-ASTRAZENECA-2009UW20968

PATIENT
  Sex: Female

DRUGS (4)
  1. SEROQUEL [Suspect]
     Route: 048
     Dates: start: 20050912, end: 20090106
  2. BUSPAR [Concomitant]
     Dates: start: 20060906
  3. AMBIEN [Concomitant]
     Dates: start: 20050914
  4. ZOLOFT [Concomitant]
     Dates: start: 20050912

REACTIONS (3)
  - DIABETES MELLITUS [None]
  - KETOACIDOSIS [None]
  - PANCREATITIS [None]
